FAERS Safety Report 21453624 (Version 3)
Quarter: 2022Q4

REPORT INFORMATION
  Report Type: Spontaneous
  Country: US (occurrence: US)
  Receive Date: 20221013
  Receipt Date: 20221128
  Transmission Date: 20230113
  Serious: No
  Sender: FDA-Public Use
  Company Number: US-BRISTOL-MYERS SQUIBB COMPANY-2022-118459

PATIENT
  Age: 69 Year
  Sex: Female
  Weight: 106.59 kg

DRUGS (1)
  1. POMALYST [Suspect]
     Active Substance: POMALIDOMIDE
     Indication: Plasma cell myeloma
     Dosage: 3WEEKS, 1 WEEK OFF
     Route: 048
     Dates: start: 20220924

REACTIONS (6)
  - Constipation [Unknown]
  - Headache [Unknown]
  - Dyspnoea exertional [Unknown]
  - Cough [Recovered/Resolved]
  - Nasal congestion [Recovered/Resolved]
  - Pyrexia [Recovered/Resolved]
